FAERS Safety Report 19310914 (Version 1)
Quarter: 2021Q2

REPORT INFORMATION
  Report Type: Spontaneous
  Country: TN (occurrence: TN)
  Receive Date: 20210526
  Receipt Date: 20210526
  Transmission Date: 20210717
  Serious: Yes (Other)
  Sender: FDA-Public Use
  Company Number: TN-INSUD PHARMA-2105TN00581

PATIENT

DRUGS (5)
  1. TACROLIMUS. [Concomitant]
     Active Substance: TACROLIMUS
     Indication: IMMUNOSUPPRESSANT DRUG THERAPY
  2. PREDNISONE. [Concomitant]
     Active Substance: PREDNISONE
     Indication: IMMUNOSUPPRESSANT DRUG THERAPY
  3. MYCOPHENOLATE MOFETIL. [Concomitant]
     Active Substance: MYCOPHENOLATE MOFETIL
     Indication: IMMUNOSUPPRESSANT DRUG THERAPY
     Dosage: UNK
  4. CRYOTHERAPEUTIC AGENTS [Concomitant]
     Indication: CUTANEOUS LEISHMANIASIS
  5. NUVESSA [Suspect]
     Active Substance: METRONIDAZOLE
     Indication: CUTANEOUS LEISHMANIASIS
     Dosage: 1500 MILLIGRAM PER DAY
     Route: 065

REACTIONS (4)
  - Leukopenia [Recovering/Resolving]
  - Toxicity to various agents [Recovering/Resolving]
  - Bicytopenia [Recovering/Resolving]
  - Thrombocytopenia [Recovering/Resolving]

NARRATIVE: CASE EVENT DATE: 2019
